FAERS Safety Report 20246000 (Version 1)
Quarter: 2021Q4

REPORT INFORMATION
  Report Type: Spontaneous
  Country: US (occurrence: None)
  Receive Date: 20211228
  Receipt Date: 20211228
  Transmission Date: 20220303
  Serious: No
  Sender: FDA-Public Use
  Company Number: None

PATIENT
  Age: 51 Year
  Sex: Female
  Weight: 69.3 kg

DRUGS (2)
  1. FOSAPREPITANT [Suspect]
     Active Substance: FOSAPREPITANT
     Indication: Prophylaxis of nausea and vomiting
     Dosage: FREQUENCY : ONCE;?
     Route: 042
     Dates: start: 20211228, end: 20211228
  2. FOSAPREPITANT [Suspect]
     Active Substance: FOSAPREPITANT
     Indication: Nausea

REACTIONS (5)
  - Hypersensitivity [None]
  - Chest discomfort [None]
  - Abdominal pain upper [None]
  - Flushing [None]
  - Feeling hot [None]

NARRATIVE: CASE EVENT DATE: 20211228
